FAERS Safety Report 7201006-X (Version None)
Quarter: 2010Q4

REPORT INFORMATION
  Report Type: 
  Country: None (occurrence: None)
  Receive Date: 20101228
  Receipt Date: 20100929
  Transmission Date: 20110411
  Serious: No
  Sender: FDA-Public Use
  Company Number: US-MYLANLABS-2010S1014164

PATIENT
  Age: 69 Year
  Sex: Male
  Weight: 74.84 kg

DRUGS (3)
  1. TRAZODONE HCL [Suspect]
     Indication: DEPRESSION
     Route: 048
     Dates: start: 20100101
  2. CLARITIN /00917501/ [Concomitant]
     Indication: HYPERSENSITIVITY
  3. CITALOPRAM [Concomitant]
     Indication: DEPRESSION

REACTIONS (2)
  - DRUG EFFECT INCREASED [None]
  - SOMNOLENCE [None]
